FAERS Safety Report 4603654-X (Version None)
Quarter: 2005Q1

REPORT INFORMATION
  Report Type: 
  Country: None (occurrence: None)
  Receive Date: 20050310
  Receipt Date: 20050302
  Transmission Date: 20050727
  Serious: Yes (Hospitalization)
  Sender: FDA-Public Use
  Company Number: PHBS2005ID03091

PATIENT
  Age: 15 Year
  Sex: Female

DRUGS (1)
  1. VOLTAREN [Suspect]
     Indication: CONTUSION
     Dosage: 0.5 AMP/DAY
     Route: 030
     Dates: start: 20050228

REACTIONS (4)
  - CHOKING SENSATION [None]
  - DYSPNOEA [None]
  - EYELID OEDEMA [None]
  - PRURITUS [None]
